FAERS Safety Report 5832841-8 (Version None)
Quarter: 2008Q3

REPORT INFORMATION
  Report Type: 
  Country: None (occurrence: None)
  Receive Date: 20080804
  Receipt Date: 20080723
  Transmission Date: 20090109
  Serious: Yes (Hospitalization)
  Sender: FDA-Public Use
  Company Number: BE-PFIZER INC-2008062383

PATIENT
  Sex: Female

DRUGS (7)
  1. SU-011,248 [Suspect]
     Indication: BREAST CANCER METASTATIC
     Route: 048
     Dates: start: 20080617, end: 20080626
  2. SU-011,248 [Suspect]
     Route: 048
     Dates: start: 20080704, end: 20080715
  3. PANTOPRAZOLE SODIUM [Concomitant]
     Route: 048
  4. SERETIDE [Concomitant]
  5. BECOZYME [Concomitant]
     Route: 048
  6. OXYCONTIN [Concomitant]
     Route: 048
     Dates: start: 20080718
  7. MORPHINE [Concomitant]
     Route: 048
     Dates: start: 20080718

REACTIONS (1)
  - GENERAL PHYSICAL HEALTH DETERIORATION [None]
